FAERS Safety Report 8561168-9 (Version None)
Quarter: 2012Q3

REPORT INFORMATION
  Report Type: 
  Country: None (occurrence: None)
  Receive Date: 20120802
  Receipt Date: 20120723
  Transmission Date: 20120928
  Serious: Yes (Hospitalization)
  Sender: FDA-Public Use
  Company Number: US-ACTELION-A-US2011-59676

PATIENT
  Age: 51 Year
  Sex: Female

DRUGS (6)
  1. TIKOSYN [Concomitant]
  2. TRACLEER [Suspect]
     Indication: PULMONARY ARTERIAL HYPERTENSION
     Dosage: UNK
     Route: 048
     Dates: start: 20020101
  3. REVATIO [Concomitant]
  4. TRACLEER [Suspect]
     Route: 048
  5. FLOLAN [Concomitant]
  6. COUMADIN [Concomitant]

REACTIONS (5)
  - CONDITION AGGRAVATED [None]
  - ASCITES [None]
  - PULMONARY HYPERTENSION [None]
  - LUNG TRANSPLANT [None]
  - FLUID RETENTION [None]
